FAERS Safety Report 9613586 (Version 3)
Quarter: 2014Q1

REPORT INFORMATION
  Report Type: Spontaneous
  Country: GB (occurrence: GB)
  Receive Date: 20131010
  Receipt Date: 20140118
  Transmission Date: 20141002
  Serious: Yes (Death, Other)
  Sender: FDA-Public Use
  Company Number: GB-ABBVIE-13P-167-1051683-00

PATIENT
  Age: 9 Month
  Sex: Female

DRUGS (6)
  1. EPILIM [Suspect]
     Indication: CONVULSION
     Route: 048
     Dates: start: 20120718, end: 20121128
  2. PHENYTOIN [Suspect]
     Indication: STATUS EPILEPTICUS
     Dosage: INTRAVENOUS (NOT OTHERWISE SPECIFIED)
     Route: 042
     Dates: start: 20121128, end: 20121128
  3. MIDAZOLAM [Suspect]
     Indication: CONVULSION
     Dosage: 2.5 MG DAILY, BUCCAL
     Dates: start: 20121128, end: 20121128
  4. KEPPRA [Suspect]
     Indication: EPILEPSY
     Dates: start: 20120709, end: 20121128
  5. PARACETAMOL [Concomitant]
     Indication: PRODUCT USED FOR UNKNOWN INDICATION
  6. DIAZEPAM [Concomitant]
     Indication: PRODUCT USED FOR UNKNOWN INDICATION

REACTIONS (6)
  - Cardiac arrest [Fatal]
  - Respiratory acidosis [Unknown]
  - Drug ineffective [Unknown]
  - Tachycardia [Unknown]
  - Hypoventilation [Unknown]
  - Prescribed overdose [Unknown]
